FAERS Safety Report 23751449 (Version 1)
Quarter: 2024Q2

REPORT INFORMATION
  Report Type: Spontaneous
  Country: US (occurrence: None)
  Receive Date: 20240416
  Receipt Date: 20240416
  Transmission Date: 20240715
  Serious: No
  Sender: FDA-Public Use
  Company Number: None

PATIENT
  Age: 61 Year
  Sex: Female

DRUGS (1)
  1. IBRANCE [Suspect]
     Active Substance: PALBOCICLIB
     Dosage: FREQUENCY : DAILY;?
     Route: 048

REACTIONS (6)
  - Pneumonia [None]
  - Fatigue [None]
  - White blood cell count decreased [None]
  - Swelling face [None]
  - Abdominal discomfort [None]
  - Nausea [None]
